FAERS Safety Report 25014993 (Version 1)
Quarter: 2025Q1

REPORT INFORMATION
  Report Type: Spontaneous
  Country: NL (occurrence: NL)
  Receive Date: 20250226
  Receipt Date: 20250226
  Transmission Date: 20250409
  Serious: Yes (Hospitalization)
  Sender: PFIZER
  Company Number: None

PATIENT
  Age: 60 Year
  Sex: Female
  Weight: 125 kg

DRUGS (4)
  1. CLINDAMYCIN HYDROCHLORIDE [Suspect]
     Active Substance: CLINDAMYCIN HYDROCHLORIDE
     Indication: Cellulitis streptococcal
     Dosage: 600 MG, 3X/DAY
     Route: 048
     Dates: start: 20250214, end: 20250217
  2. LOSARTAN [Concomitant]
     Active Substance: LOSARTAN
     Route: 048
  3. METFORMIN HYDROCHLORIDE [Concomitant]
     Active Substance: METFORMIN HYDROCHLORIDE
     Route: 048
  4. INSULINE ASPART SANOFI [Concomitant]

REACTIONS (1)
  - Dizziness [Not Recovered/Not Resolved]
